FAERS Safety Report 20610436 (Version 1)
Quarter: 2022Q1

REPORT INFORMATION
  Report Type: Spontaneous
  Country: FR (occurrence: FR)
  Receive Date: 20220318
  Receipt Date: 20220318
  Transmission Date: 20220423
  Serious: Yes (Congenital Anomaly, Other)
  Sender: FDA-Public Use
  Company Number: FR-ABBVIE-22K-056-4321569-00

PATIENT
  Sex: Male

DRUGS (2)
  1. VALPROATE SODIUM [Suspect]
     Active Substance: VALPROATE SODIUM
     Indication: Maternal exposure timing unspecified
     Route: 064
  2. FOLIC ACID [Concomitant]
     Active Substance: FOLIC ACID
     Indication: Maternal exposure timing unspecified

REACTIONS (36)
  - Foetal anticonvulsant syndrome [Unknown]
  - Limb malformation [Unknown]
  - Fibrous dysplasia of jaw [Unknown]
  - Educational problem [Unknown]
  - Language disorder [Unknown]
  - Sluggishness [Unknown]
  - Psychomotor hyperactivity [Unknown]
  - Impulse-control disorder [Unknown]
  - Psychiatric symptom [Unknown]
  - Congenital jaw malformation [Unknown]
  - Hypermobility syndrome [Unknown]
  - Multiple organ dysfunction syndrome [Unknown]
  - Respiratory disorder [Unknown]
  - Ear disorder [Unknown]
  - Nasal disorder [Unknown]
  - Oropharyngeal discomfort [Unknown]
  - Joint laxity [Unknown]
  - Foot deformity [Unknown]
  - Enuresis [Unknown]
  - Hypotonia [Unknown]
  - Retrognathia [Unknown]
  - Plagiocephaly [Unknown]
  - Myopia [Unknown]
  - Strabismus [Unknown]
  - Hypermetropia [Unknown]
  - Dysmorphism [Unknown]
  - Behaviour disorder [Unknown]
  - Psychomotor retardation [Unknown]
  - Learning disorder [Unknown]
  - Sleep disorder [Unknown]
  - Disturbance in attention [Unknown]
  - Fatigue [Unknown]
  - Dyslexia [Unknown]
  - Dysgraphia [Unknown]
  - Attention deficit hyperactivity disorder [Unknown]
  - Foetal exposure during pregnancy [Unknown]
